FAERS Safety Report 20998838 (Version 1)
Quarter: 2022Q2

REPORT INFORMATION
  Report Type: Spontaneous
  Country: US (occurrence: None)
  Receive Date: 20220622
  Receipt Date: 20220622
  Transmission Date: 20220721
  Serious: No
  Sender: FDA-Public Use
  Company Number: None

PATIENT
  Age: 22 Year
  Sex: Female
  Weight: 71.1 kg

DRUGS (2)
  1. ELURYNG [Suspect]
     Active Substance: ETHINYL ESTRADIOL\ETONOGESTREL
     Indication: Hormone level abnormal
     Dosage: OTHER QUANTITY : 1 RING;?OTHER FREQUENCY : CONSTANT IMPLANT;?
     Route: 067
     Dates: start: 20220613
  2. XYZAL [Concomitant]
     Active Substance: LEVOCETIRIZINE DIHYDROCHLORIDE

REACTIONS (2)
  - Migraine [None]
  - Nightmare [None]

NARRATIVE: CASE EVENT DATE: 20220621
